FAERS Safety Report 7415567-9 (Version None)
Quarter: 2011Q2

REPORT INFORMATION
  Report Type: 
  Country: None (occurrence: None)
  Receive Date: 20110414
  Receipt Date: 20110301
  Transmission Date: 20111010
  Serious: Yes (Other)
  Sender: FDA-Public Use
  Company Number: US-ASTRAZENECA-2011SE20987

PATIENT
  Age: 640 Month
  Sex: Male

DRUGS (15)
  1. ZYPREXA [Concomitant]
     Dosage: 2.5-7.7 MG
     Route: 048
     Dates: start: 20000811
  2. CELEXA [Concomitant]
     Dosage: 10-60 MG
     Route: 048
     Dates: start: 20011210
  3. PROZAC [Concomitant]
     Dates: start: 19990917
  4. NALTREXONE HYDROCHLORIDE [Concomitant]
     Route: 048
     Dates: start: 20070321
  5. TRAZODONE [Concomitant]
     Route: 048
     Dates: start: 20010716
  6. EFFEXOR [Concomitant]
     Dates: start: 20061205
  7. CLONAZEPAM [Concomitant]
     Dosage: 0.5 MG QAM AND 1 MG QHS
     Route: 048
     Dates: start: 20061205
  8. REMERON [Concomitant]
     Dates: start: 20061205
  9. TOPAMAX [Concomitant]
     Dates: start: 20061205
  10. PREGABALIN [Concomitant]
     Indication: NECK PAIN
     Route: 048
     Dates: start: 20070321
  11. ZOCOR [Concomitant]
     Dates: start: 19990917
  12. RISPERIDONE [Concomitant]
     Route: 048
     Dates: start: 20070321
  13. SEROQUEL [Suspect]
     Dosage: 150-400 MG
     Route: 048
     Dates: start: 20010911
  14. ELAVIL [Concomitant]
     Dosage: 10-20 MG
     Dates: start: 19990917
  15. FLUOXETINE [Concomitant]
     Route: 048
     Dates: start: 20010220

REACTIONS (6)
  - DYSPNOEA [None]
  - WEIGHT INCREASED [None]
  - NEUROPATHY PERIPHERAL [None]
  - ERECTILE DYSFUNCTION [None]
  - HYPERCHOLESTEROLAEMIA [None]
  - TYPE 2 DIABETES MELLITUS [None]
